FAERS Safety Report 9402915 (Version 1)
Quarter: 2013Q3

REPORT INFORMATION
  Report Type: Other
  Country: US (occurrence: US)
  Receive Date: 20130716
  Receipt Date: 20130716
  Transmission Date: 20140515
  Serious: Yes (Hospitalization)
  Sender: FDA-Public Use
  Company Number: US-SHIRE-ALL1-2013-04630

PATIENT
  Age: 58 Year
  Sex: Male

DRUGS (1)
  1. FOSRENOL [Suspect]
     Indication: RENAL FAILURE CHRONIC
     Dosage: 750 MG (7-750 MG TABLETS PER DAY), UNKNOWN
     Route: 048
     Dates: start: 200910, end: 20130609

REACTIONS (2)
  - Gastrointestinal ulcer [Unknown]
  - Condition aggravated [Unknown]
